FAERS Safety Report 9109576 (Version 4)
Quarter: 2013Q4

REPORT INFORMATION
  Report Type: Spontaneous
  Country: US (occurrence: US)
  Receive Date: 20130222
  Receipt Date: 20131024
  Transmission Date: 20140711
  Serious: Yes (Death, Life-Threatening, Disabling, Other)
  Sender: FDA-Public Use
  Company Number: US-MERCK-1302USA009934

PATIENT
  Sex: Female

DRUGS (4)
  1. JANUVIA [Suspect]
     Indication: TYPE 2 DIABETES MELLITUS
     Dosage: 100 MG, QD
     Route: 048
     Dates: start: 20080123, end: 20100321
  2. GLUCOSAMINE [Concomitant]
     Indication: ARTHROPATHY
     Dosage: UNK
     Dates: start: 2000, end: 200908
  3. VITAMIN D (UNSPECIFIED) [Concomitant]
     Indication: OSTEOPENIA
     Dosage: UNK
     Dates: start: 2006, end: 200908
  4. HERBALIFE XTRA CAL [Concomitant]
     Indication: OSTEOPENIA
     Dosage: UNK
     Dates: start: 2006, end: 200908

REACTIONS (12)
  - Pancreatic carcinoma [Fatal]
  - Cholecystectomy [Unknown]
  - Hepatic cancer [Unknown]
  - Transient ischaemic attack [Unknown]
  - Dry eye [Not Recovered/Not Resolved]
  - Cholecystitis chronic [Not Recovered/Not Resolved]
  - Umbilical hernia repair [Unknown]
  - Granuloma [Recovered/Resolved]
  - Dermoid cyst [Not Recovered/Not Resolved]
  - Splenomegaly [Unknown]
  - Hiatus hernia [Unknown]
  - Constipation [Recovered/Resolved]
